FAERS Safety Report 7586363-7 (Version None)
Quarter: 2011Q3

REPORT INFORMATION
  Report Type: 
  Country: None (occurrence: None)
  Receive Date: 20110701
  Receipt Date: 20081003
  Transmission Date: 20111222
  Serious: Yes (Hospitalization)
  Sender: FDA-Public Use
  Company Number: A0751464A

PATIENT
  Sex: Female
  Weight: 72.7 kg

DRUGS (1)
  1. AVANDIA [Suspect]
     Dosage: 4MG TWICE PER DAY
     Route: 048
     Dates: start: 20000405, end: 20050613

REACTIONS (7)
  - PAIN IN EXTREMITY [None]
  - PALPITATIONS [None]
  - CHEST PAIN [None]
  - HYPOAESTHESIA [None]
  - OEDEMA [None]
  - AMNESIA [None]
  - CEREBROVASCULAR ACCIDENT [None]
